FAERS Safety Report 7615593-0 (Version None)
Quarter: 2011Q3

REPORT INFORMATION
  Report Type: 
  Country: None (occurrence: None)
  Receive Date: 20110708
  Receipt Date: 20110527
  Transmission Date: 20111222
  Serious: No
  Sender: FDA-Public Use
  Company Number: 2011IP000101

PATIENT
  Age: 68 Year
  Sex: Female

DRUGS (3)
  1. BEPREVE [Suspect]
     Indication: EYE PRURITUS
     Dosage: 1 GTT;BID;OPH
     Route: 047
     Dates: start: 20110501, end: 20110501
  2. BEPREVE [Suspect]
     Indication: CONJUNCTIVITIS ALLERGIC
     Dosage: 1 GTT;BID;OPH
     Route: 047
     Dates: start: 20110501, end: 20110501
  3. ADVAIR DISKUS 100/50 [Concomitant]

REACTIONS (1)
  - EYE IRRITATION [None]
